FAERS Safety Report 12524780 (Version 1)
Quarter: 2016Q3

REPORT INFORMATION
  Report Type: Spontaneous
  Country: JP (occurrence: JP)
  Receive Date: 20160704
  Receipt Date: 20160704
  Transmission Date: 20161109
  Serious: Yes (Hospitalization, Other)
  Sender: FDA-Public Use
  Company Number: JP-PFIZER INC-2016323717

PATIENT
  Age: 80 Year
  Sex: Female

DRUGS (3)
  1. CELECOX [Suspect]
     Active Substance: CELECOXIB
     Dosage: 100 MG, 2X/DAY (AFTER BREAKFAST AND DINNER (AS-NEEDED USE ALSO NOTED)
     Route: 048
  2. WARFARIN POTASSIUM [Concomitant]
     Active Substance: WARFARIN POTASSIUM
     Dosage: UNK
  3. CELECOX [Suspect]
     Active Substance: CELECOXIB
     Dosage: 200 MG, AS NEEDED
     Route: 048

REACTIONS (3)
  - Haematochezia [Unknown]
  - Intentional product misuse [Unknown]
  - Diverticulum intestinal haemorrhagic [Unknown]
